FAERS Safety Report 5027576-8 (Version None)
Quarter: 2006Q2

REPORT INFORMATION
  Report Type: 
  Country: None (occurrence: None)
  Receive Date: 20060613
  Receipt Date: 20060613
  Transmission Date: 20061013
  Serious: Yes (Hospitalization)
  Sender: FDA-Public Use
  Company Number: None

PATIENT
  Age: 51 Year
  Sex: Male

DRUGS (7)
  1. XELODA [Suspect]
     Indication: MALIGNANT MELANOMA
     Dosage: Q HS 3 WEEKS   PO
     Route: 048
     Dates: start: 20060326
  2. THALOMID [Suspect]
     Dosage: 100 MG QHS CONT PO
     Route: 048
     Dates: start: 20060326
  3. TEMODAR [Suspect]
     Dosage: Q HS 3 WEEKS PO
     Route: 048
     Dates: start: 20060326
  4. ZOFRAN [Concomitant]
  5. TRICOR [Concomitant]
  6. LIPITOR [Concomitant]
  7. PREVACID [Concomitant]

REACTIONS (1)
  - DEEP VEIN THROMBOSIS [None]
